FAERS Safety Report 6013952-3 (Version None)
Quarter: 2008Q4

REPORT INFORMATION
  Report Type: 
  Country: None (occurrence: None)
  Receive Date: 20081219
  Receipt Date: 20081209
  Transmission Date: 20090506
  Serious: Yes (Hospitalization, Other)
  Sender: FDA-Public Use
  Company Number: US-JNJFOC-20081004204

PATIENT
  Sex: Male
  Weight: 67.59 kg

DRUGS (8)
  1. REMICADE [Suspect]
     Route: 042
  2. REMICADE [Suspect]
     Indication: CROHN'S DISEASE
     Route: 042
  3. MULTI-VITAMIN [Concomitant]
  4. GLUCOSAMINE + CONDROITIN [Concomitant]
  5. CALCIUM [Concomitant]
  6. ASCORBIC ACID [Concomitant]
  7. VITAMIN D [Concomitant]
  8. FERROUS SULFATE TAB [Concomitant]

REACTIONS (5)
  - FATIGUE [None]
  - MOUTH ULCERATION [None]
  - POLYARTHRITIS [None]
  - SENSORY DISTURBANCE [None]
  - SKIN LESION [None]
